FAERS Safety Report 8319158-7 (Version None)
Quarter: 2012Q2

REPORT INFORMATION
  Report Type: 
  Country: None (occurrence: None)
  Receive Date: 20120426
  Receipt Date: 20120426
  Transmission Date: 20120825
  Serious: Yes (Life-Threatening, Hospitalization, Other)
  Sender: FDA-Public Use
  Company Number: None

PATIENT
  Sex: Female
  Weight: 65 kg

DRUGS (7)
  1. DABIGATRAN [Suspect]
     Indication: ATRIAL FIBRILLATION
     Dosage: 150 MG BID PO
     Route: 048
  2. LOPRESSOR [Concomitant]
  3. LEXAPRO [Concomitant]
  4. MIRTAZAPINE [Concomitant]
  5. MULTAQ [Concomitant]
  6. SIMVASTATIN [Concomitant]
  7. DIGOXIN [Concomitant]

REACTIONS (9)
  - PERIORBITAL HAEMORRHAGE [None]
  - LACERATION [None]
  - CONTINUOUS HAEMODIAFILTRATION [None]
  - SUBARACHNOID HAEMORRHAGE [None]
  - ACTIVATED PARTIAL THROMBOPLASTIN TIME PROLONGED [None]
  - SUBDURAL HAEMATOMA [None]
  - FACE INJURY [None]
  - INTRAVENTRICULAR HAEMORRHAGE [None]
  - COAGULATION TEST ABNORMAL [None]
